FAERS Safety Report 11399711 (Version 2)
Quarter: 2015Q3

REPORT INFORMATION
  Report Type: Report from Study
  Country: CA (occurrence: CA)
  Receive Date: 20150820
  Receipt Date: 20150908
  Transmission Date: 20151125
  Serious: Yes (Hospitalization)
  Sender: FDA-Public Use
  Company Number: PHHY2015CA069271

PATIENT
  Age: 70 Year
  Sex: Female

DRUGS (5)
  1. ENBREL [Suspect]
     Active Substance: ETANERCEPT
     Dosage: UNK
     Route: 065
     Dates: start: 201004, end: 201110
  2. HUMIRA [Suspect]
     Active Substance: ADALIMUMAB
     Indication: PRODUCT USED FOR UNKNOWN INDICATION
     Dosage: UNK
     Route: 065
     Dates: start: 20090330, end: 20100405
  3. NEORAL [Suspect]
     Active Substance: CYCLOSPORINE
     Indication: PSORIASIS
     Dosage: UNK
     Route: 048
     Dates: start: 199709, end: 200211
  4. ENBREL [Suspect]
     Active Substance: ETANERCEPT
     Indication: PRODUCT USED FOR UNKNOWN INDICATION
     Dosage: UNK
     Route: 065
     Dates: start: 200710, end: 200903
  5. STELARA [Suspect]
     Active Substance: USTEKINUMAB
     Indication: PRODUCT USED FOR UNKNOWN INDICATION
     Dosage: 90 MG, EVERY 8 WEEKS
     Route: 065
     Dates: start: 201110, end: 20150527

REACTIONS (19)
  - Asthma [Unknown]
  - Hypersensitivity [Unknown]
  - Pharyngeal oedema [Unknown]
  - Weight increased [Unknown]
  - Skin exfoliation [Unknown]
  - Lung disorder [Recovering/Resolving]
  - Nasal septum deviation [Unknown]
  - Cough [Unknown]
  - Blood creatinine increased [Recovering/Resolving]
  - Swelling face [Unknown]
  - Fatigue [Unknown]
  - Psoriasis [Unknown]
  - Crying [Unknown]
  - Dyspnoea [Unknown]
  - Secretion discharge [Unknown]
  - Sleep apnoea syndrome [Unknown]
  - Paraesthesia [Unknown]
  - Depression [Unknown]
  - Dry skin [Unknown]

NARRATIVE: CASE EVENT DATE: 2010
